FAERS Safety Report 7331854-7 (Version None)
Quarter: 2011Q1

REPORT INFORMATION
  Report Type: 
  Country: None (occurrence: None)
  Receive Date: 20110304
  Receipt Date: 20090903
  Transmission Date: 20110831
  Serious: No
  Sender: FDA-Public Use
  Company Number: US-PFIZER INC-2009237575

PATIENT
  Sex: Male
  Weight: 70.3 kg

DRUGS (6)
  1. XALATAN [Concomitant]
     Dosage: UNK
  2. COSOPT [Concomitant]
     Dosage: UNK
  3. CAVERJECT [Suspect]
     Indication: ERECTILE DYSFUNCTION
     Dosage: AS NEEDED
     Dates: start: 19950101, end: 20090101
  4. VIAGRA [Suspect]
     Indication: ERECTILE DYSFUNCTION
     Dosage: 100 MG, AS NEEDED
     Dates: start: 20090101, end: 20090101
  5. LIPITOR [Concomitant]
     Dosage: UNK
  6. AMLODIPINE BESYLATE AND BENAZEPRIL HCL [Concomitant]
     Dosage: UNK

REACTIONS (1)
  - DRUG INEFFECTIVE [None]
